FAERS Safety Report 10298295 (Version 1)
Quarter: 2014Q3

REPORT INFORMATION
  Report Type: Spontaneous
  Country: US (occurrence: US)
  Receive Date: 20140711
  Receipt Date: 20140711
  Transmission Date: 20150326
  Serious: No
  Sender: FDA-Public Use
  Company Number: US-GLAXOSMITHKLINE-A1066515A

PATIENT
  Age: 78 Year
  Sex: Female

DRUGS (4)
  1. ATENOLOL. [Concomitant]
     Active Substance: ATENOLOL
  2. AZELASTINE [Concomitant]
     Active Substance: AZELASTINE
  3. ASPIRIN. [Concomitant]
     Active Substance: ASPIRIN
  4. FLOVENT [Suspect]
     Active Substance: FLUTICASONE PROPIONATE
     Indication: ASTHMA
     Dosage: 2PUFF TWICE PER DAY
     Route: 055

REACTIONS (3)
  - Tinnitus [Recovered/Resolved]
  - Product quality issue [Recovered/Resolved]
  - Adverse drug reaction [Recovered/Resolved]

NARRATIVE: CASE EVENT DATE: 20140322
